FAERS Safety Report 4505117-9 (Version None)
Quarter: 2004Q4

REPORT INFORMATION
  Report Type: 
  Country: None (occurrence: None)
  Receive Date: 20041119
  Receipt Date: 20041028
  Transmission Date: 20050328
  Serious: Yes (Hospitalization)
  Sender: FDA-Public Use
  Company Number: JP-ABBOTT-04P-087-0279407-00

PATIENT
  Sex: Female

DRUGS (6)
  1. CEFZON CAPSULE [Suspect]
     Indication: CELLULITIS
     Route: 048
     Dates: start: 20040929, end: 20041001
  2. TEGRETOL [Suspect]
     Indication: CONVULSION
     Route: 048
     Dates: start: 20040721, end: 20041004
  3. CEFAZOLIN [Concomitant]
     Indication: DRUG USE FOR UNKNOWN INDICATION
     Route: 050
     Dates: start: 20040929, end: 20041001
  4. AMLODIPINE BESYLATE [Concomitant]
     Indication: DRUG USE FOR UNKNOWN INDICATION
     Dates: end: 20041004
  5. TOCOPHEROL CONCENTRATE CAP [Concomitant]
     Indication: DRUG USE FOR UNKNOWN INDICATION
     Dates: end: 20041004
  6. ETIZOLAM [Concomitant]
     Indication: DRUG USE FOR UNKNOWN INDICATION

REACTIONS (9)
  - BLOOD PRESSURE INCREASED [None]
  - COUGH [None]
  - DRUG HYPERSENSITIVITY [None]
  - HEPATIC ENZYME INCREASED [None]
  - HOARSENESS [None]
  - LYMPHOCYTE MORPHOLOGY ABNORMAL [None]
  - OXYGEN SATURATION DECREASED [None]
  - STEVENS-JOHNSON SYNDROME [None]
  - SWELLING [None]
